FAERS Safety Report 9466471 (Version 1)
Quarter: 2013Q4

REPORT INFORMATION
  Report Type: Spontaneous
  Country: US (occurrence: None)
  Receive Date: 20130816
  Receipt Date: 20130816
  Transmission Date: 20140711
  Serious: Yes (Hospitalization)
  Sender: FDA-Public Use
  Company Number: None

PATIENT
  Age: 35 Year
  Sex: Female
  Weight: 88.45 kg

DRUGS (4)
  1. NICOTROL INHALER 10MG CARTRIDGE (4MG DELIVERED) PFIZER [Suspect]
     Indication: SMOKING CESSATION THERAPY
     Dosage: 10 MG CARTRIDGE (1-3/DAY
     Dates: start: 20130206, end: 20130321
  2. METHADONE [Concomitant]
  3. ZOFRAN [Concomitant]
  4. VALTREX [Concomitant]

REACTIONS (1)
  - Drug withdrawal syndrome neonatal [None]
